FAERS Safety Report 9164415 (Version 1)
Quarter: 2013Q1

REPORT INFORMATION
  Report Type: Report from Study
  Country: US (occurrence: US)
  Receive Date: 20130315
  Receipt Date: 20130315
  Transmission Date: 20140127
  Serious: No
  Sender: FDA-Public Use
  Company Number: US-009507513-1303USA006583

PATIENT
  Sex: Male
  Weight: 78.46 kg

DRUGS (7)
  1. VICTRELIS [Suspect]
     Dosage: 800 MG, ONCE IN EVERY THREE DAYS
  2. RIBAVIRIN [Suspect]
     Dosage: 200 MICROGRAM, UNK
  3. PEGINTERFERON ALFA-2A [Suspect]
     Dosage: 180 MICROGRAM, QM
  4. ONDANSETRON [Concomitant]
  5. OMEPRAZOLE [Concomitant]
     Dosage: UNK
  6. PROPRANOLOL HYDROCHLORIDE [Concomitant]
     Dosage: UNK
  7. SPIRONOLACTONE [Concomitant]
     Dosage: UNK

REACTIONS (4)
  - Abdominal discomfort [Unknown]
  - Depression [Unknown]
  - Nausea [Unknown]
  - Fatigue [Unknown]
